FAERS Safety Report 20568228 (Version 7)
Quarter: 2024Q3

REPORT INFORMATION
  Report Type: Report from Study
  Country: CA (occurrence: CA)
  Receive Date: 20220308
  Receipt Date: 20240820
  Transmission Date: 20241016
  Serious: Yes (Other)
  Sender: BAUSCH AND LOMB
  Company Number: CA-BAUSCH-BL-2019-061335

PATIENT
  Age: 50 Year
  Sex: Male

DRUGS (6)
  1. SILIQ [Suspect]
     Active Substance: BRODALUMAB
     Indication: Psoriasis
     Dosage: 210MG/ 1.5 ML, WEEKLY (WEEK 0 - 2)
     Route: 058
     Dates: start: 20190801, end: 201908
  2. SILIQ [Suspect]
     Active Substance: BRODALUMAB
     Dosage: 210MG/ 1.5 ML, Q2 WEEKS
     Route: 058
     Dates: start: 2019, end: 2024
  3. SILIQ [Suspect]
     Active Substance: BRODALUMAB
     Dosage: 210MG/ 1.5 ML, Q2 WEEKS
     Route: 058
     Dates: start: 2024
  4. METHYLPHENIDATE [Concomitant]
     Active Substance: METHYLPHENIDATE
     Indication: Product used for unknown indication
  5. PAROXETINE [Concomitant]
     Active Substance: PAROXETINE
     Indication: Mental disorder
  6. NAPROXEN [Concomitant]
     Active Substance: NAPROXEN
     Indication: Product used for unknown indication

REACTIONS (22)
  - Face injury [Unknown]
  - Psoriatic arthropathy [Unknown]
  - Spinal compression fracture [Unknown]
  - Lumbar vertebral fracture [Unknown]
  - Self-destructive behaviour [Unknown]
  - Scar [Unknown]
  - Cough [Recovered/Resolved]
  - Pruritus [Recovered/Resolved]
  - Excessive cerumen production [Recovered/Resolved]
  - Stress [Unknown]
  - Depressed mood [Unknown]
  - Psoriasis [Unknown]
  - Multiple injuries [Unknown]
  - Fall [Unknown]
  - Limb discomfort [Not Recovered/Not Resolved]
  - Pain [Not Recovered/Not Resolved]
  - Oropharyngeal pain [Recovered/Resolved]
  - Product dose omission issue [Unknown]
  - Treatment noncompliance [Unknown]
  - Product dose omission in error [Unknown]
  - Therapy interrupted [Unknown]
  - Product communication issue [Unknown]

NARRATIVE: CASE EVENT DATE: 20190101
